FAERS Safety Report 7152500-1 (Version None)
Quarter: 2010Q4

REPORT INFORMATION
  Report Type: 
  Country: None (occurrence: None)
  Receive Date: 20101213
  Receipt Date: 20101208
  Transmission Date: 20110411
  Serious: Yes (Other)
  Sender: FDA-Public Use
  Company Number: US-PFIZER INC-2010167452

PATIENT
  Sex: Female
  Weight: 63.49 kg

DRUGS (4)
  1. ZITHROMAX [Suspect]
     Indication: SINUSITIS
     Dosage: 250 MG, DAILY
     Route: 048
     Dates: start: 20101206
  2. ATENOLOL [Concomitant]
     Indication: HYPERTENSION
     Dosage: UNK
  3. COUMADIN [Concomitant]
     Indication: ATRIAL FIBRILLATION
     Dosage: UNK
  4. DILTIAZEM [Concomitant]
     Indication: HYPERTENSION
     Dosage: UNK

REACTIONS (1)
  - ARRHYTHMIA [None]
